FAERS Safety Report 21124317 (Version 1)
Quarter: 2022Q3

REPORT INFORMATION
  Report Type: Spontaneous
  Country: US (occurrence: None)
  Receive Date: 20220725
  Receipt Date: 20220725
  Transmission Date: 20221027
  Serious: No
  Sender: FDA-Public Use
  Company Number: 2022A264320

PATIENT
  Age: 24134 Day
  Sex: Female
  Weight: 52.6 kg

DRUGS (1)
  1. BREZTRI [Suspect]
     Active Substance: BUDESONIDE\FORMOTEROL\GLYCOPYRROLATE
     Dosage: 160 MCG/9 MCG/4.8 MCG, 1 PUFF, ONCE A DAY
     Route: 055
     Dates: start: 20220503

REACTIONS (5)
  - Macular degeneration [Unknown]
  - Device use issue [Unknown]
  - Drug dose omission by device [Unknown]
  - Off label use [Unknown]
  - Device malfunction [Unknown]

NARRATIVE: CASE EVENT DATE: 20220721
